FAERS Safety Report 25037385 (Version 1)
Quarter: 2025Q1

REPORT INFORMATION
  Report Type: Spontaneous
  Country: GB (occurrence: GB)
  Receive Date: 20250304
  Receipt Date: 20250304
  Transmission Date: 20250408
  Serious: Yes (Death, Other)
  Sender: DAIICHI
  Company Number: GB-DSJP-DS-2025-122966-GB

PATIENT
  Sex: Female

DRUGS (1)
  1. ENHERTU [Suspect]
     Active Substance: FAM-TRASTUZUMAB DERUXTECAN-NXKI
     Indication: Product used for unknown indication
     Route: 065

REACTIONS (4)
  - Breast cancer metastatic [Fatal]
  - Pneumonia [Fatal]
  - Interstitial lung disease [Fatal]
  - Pulmonary oedema [Unknown]
